FAERS Safety Report 4330756-8 (Version None)
Quarter: 2004Q1

REPORT INFORMATION
  Report Type: 
  Country: None (occurrence: None)
  Receive Date: 20040331
  Receipt Date: 20040301
  Transmission Date: 20041129
  Serious: Yes (Life-Threatening)
  Sender: FDA-Public Use
  Company Number: 2004-UK-00207UK

PATIENT
  Age: 58 Year
  Sex: Male

DRUGS (6)
  1. AGGRENOX [Suspect]
     Indication: CEREBROVASCULAR ACCIDENT PROPHYLAXIS
     Dosage: NR (NR, NOT); PO
     Route: 048
  2. CLOPIDOGREL (PLACEBO) (CLOPIDOGREL) (TA) [Suspect]
     Indication: CEREBROVASCULAR ACCIDENT PROPHYLAXIS
     Dosage: 200 MG; PO
     Route: 048
  3. ASPIRIN [Suspect]
     Indication: CEREBROVASCULAR ACCIDENT PROPHYLAXIS
     Dosage: 25 MG (NR, NOT REPORTED); PO
     Route: 048
  4. MICARDIS [Suspect]
     Indication: CEREBROVASCULAR ACCIDENT PROPHYLAXIS
     Dosage: 80 MG (NR, NOT REPORTED); PO
     Route: 048
  5. STATIN (ZOCARD) (TA) [Concomitant]
  6. ENALAPRIL MALEATE [Concomitant]

REACTIONS (1)
  - HYPERSENSITIVITY [None]
